FAERS Safety Report 5444304-2 (Version None)
Quarter: 2007Q3

REPORT INFORMATION
  Report Type: 
  Country: None (occurrence: None)
  Receive Date: 20070904
  Receipt Date: 20070904
  Transmission Date: 20080115
  Serious: Yes (Life-Threatening)
  Sender: FDA-Public Use
  Company Number: None

PATIENT
  Sex: Female

DRUGS (3)
  1. ADRIAMYCIN PFS [Suspect]
     Indication: BREAST CANCER
     Dates: start: 19981211, end: 19990216
  2. CYTOXAN [Suspect]
     Indication: BREAST CANCER
     Dates: start: 19981211, end: 19990216
  3. TAXOL [Suspect]
     Dates: start: 19990308, end: 19990510

REACTIONS (1)
  - ENDOMETRIAL CANCER [None]
